FAERS Safety Report 9795311 (Version 1)
Quarter: 2014Q1

REPORT INFORMATION
  Report Type: Report from Study
  Country: US (occurrence: US)
  Receive Date: 20140103
  Receipt Date: 20140103
  Transmission Date: 20141002
  Serious: Yes (Hospitalization)
  Sender: FDA-Public Use
  Company Number: US-ROCHE-1325037

PATIENT
  Sex: Female

DRUGS (8)
  1. BONIVA [Suspect]
     Indication: SENILE OSTEOPOROSIS
     Route: 048
  2. ASPIRIN [Concomitant]
     Route: 048
  3. DITROPAN [Concomitant]
     Route: 048
  4. WELLBUTRIN [Concomitant]
     Route: 065
  5. ZOCOR [Concomitant]
     Route: 065
  6. LASIX [Concomitant]
     Route: 065
  7. VICODIN [Concomitant]
  8. KEFLEX [Concomitant]
     Indication: CYSTITIS
     Route: 065

REACTIONS (5)
  - Hip fracture [Unknown]
  - Pain [Unknown]
  - Headache [Unknown]
  - Dyspnoea [Unknown]
  - Bone lesion [Unknown]
